FAERS Safety Report 8177574-0 (Version None)
Quarter: 2012Q1

REPORT INFORMATION
  Report Type: 
  Country: None (occurrence: None)
  Receive Date: 20120301
  Receipt Date: 20120220
  Transmission Date: 20120608
  Serious: Yes (Hospitalization, Disabling, Congenital Anomaly, Other)
  Sender: FDA-Public Use
  Company Number: PHHY2012AU012867

PATIENT
  Sex: Female
  Weight: 1.43 kg

DRUGS (1)
  1. CLOZARIL [Suspect]
     Dosage: 75 MG, UNK
     Route: 064

REACTIONS (8)
  - FOETAL EXPOSURE DURING PREGNANCY [None]
  - RENAL IMPAIRMENT [None]
  - PREMATURE BABY [None]
  - VACTERL SYNDROME [None]
  - CARDIAC DISORDER [None]
  - VENTRICULAR SEPTAL DEFECT [None]
  - FEMALE GENITAL TRACT FISTULA [None]
  - SINGLE FUNCTIONAL KIDNEY [None]
